FAERS Safety Report 5414878-6 (Version None)
Quarter: 2007Q3

REPORT INFORMATION
  Report Type: 
  Country: None (occurrence: None)
  Receive Date: 20070815
  Receipt Date: 20070328
  Transmission Date: 20080115
  Serious: No
  Sender: FDA-Public Use
  Company Number: US-KINGPHARMUSA00001-K200700380

PATIENT

DRUGS (4)
  1. SEPTRA [Suspect]
     Dosage: UNK, BID
     Route: 048
     Dates: start: 20070326, end: 20070328
  2. ZOCOR [Concomitant]
     Dosage: 40 MG, QD
     Route: 048
  3. RANITIDINE   /00550802/ [Concomitant]
     Dosage: 150 MG, BID
     Route: 048
  4. NAPROXEN [Concomitant]
     Dosage: 1 TABLET, QD
     Route: 048

REACTIONS (2)
  - HAEMATURIA [None]
  - HAEMOLYSIS [None]
